FAERS Safety Report 8563977-9 (Version None)
Quarter: 2012Q3

REPORT INFORMATION
  Report Type: 
  Country: None (occurrence: None)
  Receive Date: 20120803
  Receipt Date: 20120730
  Transmission Date: 20120928
  Serious: Yes (Other)
  Sender: FDA-Public Use
  Company Number: PHHY2010JP26337

PATIENT
  Age: 75 Year
  Sex: Male

DRUGS (3)
  1. AREDIA [Suspect]
     Dosage: 45 MG, DAILY
     Route: 042
     Dates: start: 20050928, end: 20060426
  2. ZOMETA [Suspect]
     Indication: MULTIPLE MYELOMA
     Dosage: 4 MG, DAILY
     Route: 042
     Dates: start: 20060512, end: 20081015
  3. RISEDRONATE SODIUM [Suspect]
     Dosage: 2.5 MG, DAILY
     Route: 048
     Dates: start: 20050713, end: 20050824

REACTIONS (4)
  - NASAL CONGESTION [None]
  - IMPAIRED HEALING [None]
  - SINUSITIS [None]
  - OSTEONECROSIS OF JAW [None]
